FAERS Safety Report 25640810 (Version 1)
Quarter: 2025Q3

REPORT INFORMATION
  Report Type: Spontaneous
  Country: US (occurrence: US)
  Receive Date: 20250804
  Receipt Date: 20250804
  Transmission Date: 20251020
  Serious: Yes (Death)
  Sender: AMGEN
  Company Number: US-AMGEN-USASP2025152224

PATIENT
  Age: 55 Year
  Sex: Female

DRUGS (6)
  1. BLINATUMOMAB [Suspect]
     Active Substance: BLINATUMOMAB
     Indication: Acute myeloid leukaemia
     Route: 040
  2. BLINATUMOMAB [Suspect]
     Active Substance: BLINATUMOMAB
     Route: 040
  3. CLADRIBINE [Concomitant]
     Active Substance: CLADRIBINE
     Indication: Acute myeloid leukaemia
     Dosage: 5 MILLIGRAM/SQ. METER, QD (FOR 4 TO 5 DAYS DURING INDUCTION)
     Route: 065
  4. CYTARABINE [Concomitant]
     Active Substance: CYTARABINE
     Indication: Acute myeloid leukaemia
     Dosage: 20 MILLIGRAM, BID (FOR 7 TO 10 DAYS DURING INDUCTION)
     Route: 058
  5. VENETOCLAX [Concomitant]
     Active Substance: VENETOCLAX
     Indication: Acute myeloid leukaemia
     Dosage: 400 MILLIGRAM, QD (FOR 5 TO 14 DAYS)
     Route: 065
  6. DEXAMETHASONE [Concomitant]
     Active Substance: DEXAMETHASONE
     Indication: Acute myeloid leukaemia
     Route: 065

REACTIONS (2)
  - Acute myeloid leukaemia [Fatal]
  - Ovarian cancer metastatic [Fatal]
